FAERS Safety Report 19954445 (Version 1)
Quarter: 2021Q4

REPORT INFORMATION
  Report Type: Spontaneous
  Country: GB (occurrence: GB)
  Receive Date: 20211014
  Receipt Date: 20211014
  Transmission Date: 20220303
  Serious: Yes (Other)
  Sender: FDA-Public Use
  Company Number: None

PATIENT
  Age: 71 Year
  Sex: Male
  Weight: 92 kg

DRUGS (8)
  1. AMLODIPINE [Suspect]
     Active Substance: AMLODIPINE BESYLATE
     Indication: Blood pressure abnormal
     Dosage: 5 MG, QD
     Route: 065
     Dates: start: 20210623
  2. ATORVASTATIN [Concomitant]
     Active Substance: ATORVASTATIN
     Indication: Cardiac disorder
     Dosage: UNK, QD
     Route: 065
     Dates: start: 20210614
  3. CHLORPROMAZINE [Concomitant]
     Active Substance: CHLORPROMAZINE
     Indication: Product used for unknown indication
     Dosage: 1 DF, QN
     Route: 065
     Dates: start: 20210614
  4. LATANOPROST [Concomitant]
     Active Substance: LATANOPROST
     Indication: Eye disorder
     Dosage: 1 DRP, QD (TO BOTH EYES)
     Route: 065
     Dates: start: 20210614
  5. LAXIDO JUNIOR [Concomitant]
     Indication: Product used for unknown indication
     Dosage: TAKE THE CONTENTS OF ONE OR TWO SACHETS DAILY I...
     Route: 065
     Dates: start: 20210614
  6. LERCANIDIPINE HYDROCHLORIDE [Concomitant]
     Active Substance: LERCANIDIPINE HYDROCHLORIDE
     Indication: Product used for unknown indication
     Dosage: 1 DF, QD
     Route: 065
     Dates: start: 20211007
  7. OLANZAPINE [Concomitant]
     Active Substance: OLANZAPINE
     Indication: Affective disorder
     Dosage: 1 DF, QD
     Route: 065
     Dates: start: 20210614
  8. CINNARIZINE [Concomitant]
     Active Substance: CINNARIZINE
     Indication: Product used for unknown indication
     Dosage: 1-2  UP TO TDS NOT TO TAKE REGULARLY
     Route: 065
     Dates: start: 20210903, end: 20211001

REACTIONS (1)
  - Joint swelling [Unknown]

NARRATIVE: CASE EVENT DATE: 20211007
